FAERS Safety Report 6673676-6 (Version None)
Quarter: 2010Q2

REPORT INFORMATION
  Report Type: 
  Country: None (occurrence: None)
  Receive Date: 20100408
  Receipt Date: 20100329
  Transmission Date: 20101027
  Serious: Yes (Hospitalization)
  Sender: FDA-Public Use
  Company Number: GR-ABBOTT-10P-066-0632469-00

PATIENT
  Age: 40 Year
  Sex: Female
  Weight: 49 kg

DRUGS (7)
  1. ZEMPLAR [Suspect]
     Indication: HYPERPARATHYROIDISM SECONDARY
     Route: 042
     Dates: start: 20080905
  2. RENAGEL [Concomitant]
     Indication: HYPERPHOSPHATAEMIA
     Dosage: 2 - 800MG TABS THREE TIMES DAILY
     Route: 048
     Dates: start: 20100205
  3. RENAGEL [Concomitant]
     Dosage: 1 - 800MG TAB THREE TIMES DAILY
  4. FILICINE [Concomitant]
     Indication: FOLATE DEFICIENCY
     Route: 048
     Dates: start: 20090403
  5. PLAVIX [Concomitant]
     Indication: THROMBOSIS PROPHYLAXIS
     Route: 048
     Dates: start: 20090206, end: 20100328
  6. SUPERAMIN [Concomitant]
     Indication: CARNITINE DEFICIENCY
     Route: 042
     Dates: start: 20090206
  7. INNOHEP [Concomitant]
     Indication: HAEMODIALYSIS
     Route: 042
     Dates: start: 20090108

REACTIONS (5)
  - ARTERIOVENOUS FISTULA SITE INFECTION [None]
  - DEVICE RELATED INFECTION [None]
  - PYREXIA [None]
  - STAPHYLOCOCCAL BACTERAEMIA [None]
  - UPPER RESPIRATORY TRACT INFECTION [None]
